FAERS Safety Report 21749358 (Version 2)
Quarter: 2022Q4

REPORT INFORMATION
  Report Type: Spontaneous
  Country: CA (occurrence: CA)
  Receive Date: 20221219
  Receipt Date: 20221227
  Transmission Date: 20230113
  Serious: No
  Sender: FDA-Public Use
  Company Number: CA-PFIZER INC-202201378059

PATIENT
  Age: 52 Year
  Sex: Female

DRUGS (2)
  1. SULFASALAZINE [Suspect]
     Active Substance: SULFASALAZINE
     Dosage: 20 MG
  2. DULOXETINE [Concomitant]
     Active Substance: DULOXETINE
     Dosage: UNK

REACTIONS (2)
  - Skin papilloma [Not Recovered/Not Resolved]
  - Liver function test increased [Unknown]
